FAERS Safety Report 7178481-2 (Version None)
Quarter: 2010Q4

REPORT INFORMATION
  Report Type: 
  Country: None (occurrence: None)
  Receive Date: 20101220
  Receipt Date: 20101115
  Transmission Date: 20110411
  Serious: Yes (Hospitalization)
  Sender: FDA-Public Use
  Company Number: FR-AMGEN-KDC439748

PATIENT

DRUGS (3)
  1. PANITUMUMAB [Suspect]
     Indication: BREAST CANCER
     Dosage: 540 MG, UNK
     Route: 042
     Dates: start: 20100616
  2. NEULASTA [Suspect]
     Indication: BREAST CANCER
     Dosage: 6 MG, UNK
     Route: 042
     Dates: start: 20100618
  3. DOCETAXEL [Suspect]
     Dosage: 180 MG, UNK
     Route: 058
     Dates: start: 20100909

REACTIONS (3)
  - NAUSEA [None]
  - PAIN [None]
  - VOMITING [None]
